FAERS Safety Report 12532245 (Version 1)
Quarter: 2016Q3

REPORT INFORMATION
  Report Type: Spontaneous
  Country: FR (occurrence: FR)
  Receive Date: 20160706
  Receipt Date: 20160706
  Transmission Date: 20161109
  Serious: Yes (Hospitalization, Other)
  Sender: FDA-Public Use
  Company Number: FR-009507513-1606FRA014510

PATIENT
  Age: 41 Year
  Sex: Female

DRUGS (2)
  1. NEXPLANON [Suspect]
     Active Substance: ETONOGESTREL
     Dosage: UNK
     Route: 059
     Dates: start: 20130806
  2. NEXPLANON [Suspect]
     Active Substance: ETONOGESTREL
     Dosage: UNK
     Route: 059
     Dates: end: 201308

REACTIONS (6)
  - Difficulty removing drug implant [Recovered/Resolved]
  - Incisional hernia [Unknown]
  - Salpingitis [Unknown]
  - Limb injury [Unknown]
  - Salpingectomy [Unknown]
  - Haematoma [Unknown]

NARRATIVE: CASE EVENT DATE: 2011
